FAERS Safety Report 14398959 (Version 2)
Quarter: 2018Q1

REPORT INFORMATION
  Report Type: Spontaneous
  Country: US (occurrence: US)
  Receive Date: 20180117
  Receipt Date: 20180217
  Transmission Date: 20180509
  Serious: Yes (Other)
  Sender: FDA-Public Use
  Company Number: US-JNJFOC-20171134133

PATIENT
  Age: 60 Year
  Sex: Female
  Weight: 51.71 kg

DRUGS (2)
  1. XARELTO [Suspect]
     Active Substance: RIVAROXABAN
     Indication: DEEP VEIN THROMBOSIS
     Route: 048
     Dates: start: 20171123, end: 20180111
  2. XARELTO [Suspect]
     Active Substance: RIVAROXABAN
     Indication: DEEP VEIN THROMBOSIS
     Route: 048
     Dates: start: 20171102, end: 20171123

REACTIONS (11)
  - Peripheral swelling [Not Recovered/Not Resolved]
  - Haemorrhage [Not Recovered/Not Resolved]
  - Fatigue [Recovering/Resolving]
  - Abdominal pain [Not Recovered/Not Resolved]
  - Constipation [Recovering/Resolving]
  - Contraindication to medical treatment [Unknown]
  - Biliary colic [Unknown]
  - Lethargy [Recovering/Resolving]
  - Dizziness [Recovering/Resolving]
  - Back pain [Recovering/Resolving]
  - Skin discolouration [Unknown]

NARRATIVE: CASE EVENT DATE: 201711
